FAERS Safety Report 9455875 (Version 2)
Quarter: 2013Q3

REPORT INFORMATION
  Report Type: Report from Study
  Country: JP (occurrence: JP)
  Receive Date: 20130813
  Receipt Date: 20130927
  Transmission Date: 20140515
  Serious: Yes (Hospitalization)
  Sender: FDA-Public Use
  Company Number: JP-009507513-1308JPN003786

PATIENT
  Age: 64 Year
  Sex: Male
  Weight: 58.7 kg

DRUGS (6)
  1. GLACTIV [Suspect]
     Indication: TYPE 2 DIABETES MELLITUS
     Dosage: 50 MG, QD
     Route: 048
     Dates: start: 20120609, end: 20120901
  2. PREMINENT TABLETS [Concomitant]
  3. CADUET [Concomitant]
  4. VOGLIBOSE [Concomitant]
  5. GLIMICRON [Concomitant]
  6. ALLOPURINOL [Concomitant]

REACTIONS (5)
  - Blood potassium increased [Not Recovered/Not Resolved]
  - Blood creatinine increased [Not Recovered/Not Resolved]
  - Blood urea increased [Not Recovered/Not Resolved]
  - Blood uric acid increased [Recovered/Resolved]
  - Heat illness [Recovered/Resolved]
